FAERS Safety Report 9369971 (Version 1)
Quarter: 2013Q2

REPORT INFORMATION
  Report Type: Spontaneous
  Country: BR (occurrence: BR)
  Receive Date: 20130626
  Receipt Date: 20130626
  Transmission Date: 20140414
  Serious: Yes (Other)
  Sender: FDA-Public Use
  Company Number: BR-009507513-1208BRA009290

PATIENT
  Age: 21 Year
  Sex: Female
  Weight: 69 kg

DRUGS (4)
  1. SINGULAIR [Suspect]
     Indication: RHINITIS
     Dosage: 10 MG, QD
     Route: 048
     Dates: start: 20120721, end: 201208
  2. SINGULAIR [Suspect]
     Indication: SINUSITIS
  3. BUDESONIDE [Concomitant]
     Indication: RHINITIS
     Dosage: UNK
     Dates: start: 201201
  4. MIFLONIDE [Concomitant]
     Indication: RHINITIS
     Dosage: UNK
     Dates: start: 201201

REACTIONS (6)
  - Labour complication [Recovered/Resolved]
  - Nausea [Recovered/Resolved]
  - Palpitations [Recovered/Resolved]
  - Dizziness [Recovered/Resolved]
  - Hypersensitivity [Recovered/Resolved]
  - Exposure during pregnancy [Unknown]
